FAERS Safety Report 8533230-8 (Version None)
Quarter: 2012Q3

REPORT INFORMATION
  Report Type: 
  Country: None (occurrence: None)
  Receive Date: 20120717
  Receipt Date: 20120717
  Transmission Date: 20120928
  Serious: Yes (Life-Threatening)
  Sender: FDA-Public Use
  Company Number: None

PATIENT
  Sex: Male
  Weight: 116 kg

DRUGS (7)
  1. RIBAVIRIN [Suspect]
     Indication: HEPATITIS C
     Dosage: 600MG BID PO
     Route: 048
     Dates: start: 20120112, end: 20120701
  2. PEGASYS [Suspect]
     Dosage: 180 MCG WEEKLY SQ
     Route: 058
     Dates: start: 20120112, end: 20120701
  3. ASPIRIN [Concomitant]
  4. TEMAZEPAM [Concomitant]
  5. PERCOCET [Concomitant]
  6. INCIVEK [Concomitant]
  7. XANAX [Concomitant]

REACTIONS (2)
  - SUICIDAL IDEATION [None]
  - HOMICIDAL IDEATION [None]
